FAERS Safety Report 4870616-7 (Version None)
Quarter: 2005Q4

REPORT INFORMATION
  Report Type: 
  Country: None (occurrence: None)
  Receive Date: 20051223
  Receipt Date: 20051215
  Transmission Date: 20060501
  Serious: No
  Sender: FDA-Public Use
  Company Number: 1915

PATIENT
  Age: 17 Year
  Sex: Male
  Weight: 63.5036 kg

DRUGS (1)
  1. AMNESTEEM [Suspect]
     Indication: ACNE
     Dosage: 20MG QD, 40MG HS, PO, (ONE DOSE)
     Route: 048
     Dates: start: 20051205

REACTIONS (2)
  - PSYCHOMOTOR HYPERACTIVITY [None]
  - TREMOR [None]
